FAERS Safety Report 7208753-4 (Version None)
Quarter: 2011Q1

REPORT INFORMATION
  Report Type: 
  Country: None (occurrence: None)
  Receive Date: 20110104
  Receipt Date: 20101230
  Transmission Date: 20110831
  Serious: Yes (Other)
  Sender: FDA-Public Use
  Company Number: US-PFIZER INC-2010182216

PATIENT
  Sex: Female
  Weight: 54.4 kg

DRUGS (2)
  1. OMEPRAZOLE [Concomitant]
     Dosage: UNK
  2. LIPITOR [Suspect]
     Indication: BLOOD CHOLESTEROL INCREASED
     Dosage: 20 MG, DAILY
     Route: 048

REACTIONS (6)
  - COELIAC DISEASE [None]
  - WEIGHT DECREASED [None]
  - FUNGAL INFECTION [None]
  - STRESS [None]
  - SLEEP DISORDER [None]
  - HYPERTENSION [None]
